FAERS Safety Report 13195043 (Version 1)
Quarter: 2017Q1

REPORT INFORMATION
  Report Type: Spontaneous
  Country: US (occurrence: US)
  Receive Date: 20170207
  Receipt Date: 20170207
  Transmission Date: 20170428
  Serious: No
  Sender: FDA-Public Use
  Company Number: US-ELI_LILLY_AND_COMPANY-US201702000781

PATIENT
  Sex: Female

DRUGS (1)
  1. TRULICITY [Suspect]
     Active Substance: DULAGLUTIDE
     Indication: PRODUCT USED FOR UNKNOWN INDICATION
     Dosage: .75 MG, WEEKLY (1/W)
     Route: 065
     Dates: start: 201701

REACTIONS (10)
  - Diarrhoea [Unknown]
  - Abdominal pain upper [Unknown]
  - Constipation [Unknown]
  - Muscle strain [Unknown]
  - Pain [Unknown]
  - Fatigue [Unknown]
  - Abdominal pain [Unknown]
  - Feeling abnormal [Unknown]
  - Abdominal pain lower [Unknown]
  - Urticaria [Unknown]

NARRATIVE: CASE EVENT DATE: 20170130
